FAERS Safety Report 9140712 (Version 1)
Quarter: 2013Q1

REPORT INFORMATION
  Report Type: Spontaneous
  Country: US (occurrence: US)
  Receive Date: 20130305
  Receipt Date: 20130305
  Transmission Date: 20140127
  Serious: Yes (Other)
  Sender: FDA-Public Use
  Company Number: PHHY2013US020367

PATIENT
  Age: 8 Month
  Sex: Male

DRUGS (7)
  1. PHENOBARBITAL [Suspect]
     Indication: TUBEROUS SCLEROSIS
  2. PHENYTOIN [Suspect]
     Indication: TUBEROUS SCLEROSIS
  3. TOPIRAMATE [Suspect]
     Indication: TUBEROUS SCLEROSIS
  4. EVEROLIMUS [Suspect]
     Indication: TUBEROUS SCLEROSIS
  5. LEVETIRACETAM [Suspect]
     Indication: TUBEROUS SCLEROSIS
  6. VIGABATRIN [Suspect]
     Indication: TUBEROUS SCLEROSIS
  7. LACOSAMIDE [Suspect]
     Indication: TUBEROUS SCLEROSIS

REACTIONS (6)
  - Pneumonitis [Unknown]
  - Infantile spasms [Recovering/Resolving]
  - Partial seizures [Recovering/Resolving]
  - Convulsion [Recovering/Resolving]
  - Disease progression [Recovering/Resolving]
  - Drug ineffective [Unknown]
